FAERS Safety Report 17685159 (Version 1)
Quarter: 2020Q2

REPORT INFORMATION
  Report Type: Spontaneous
  Country: US (occurrence: US)
  Receive Date: 20200420
  Receipt Date: 20200420
  Transmission Date: 20200714
  Serious: No
  Sender: FDA-Public Use
  Company Number: None

PATIENT
  Age: 47 Year
  Sex: Female
  Weight: 75.6 kg

DRUGS (6)
  1. METHOTREXATE. [Concomitant]
     Active Substance: METHOTREXATE
  2. TALTZ [Suspect]
     Active Substance: IXEKIZUMAB
     Indication: PSORIASIS
     Dosage: ?          QUANTITY:2 INJECTION(S);OTHER FREQUENCY:ONCE PER MONTH;OTHER ROUTE:INJECTION?
     Dates: start: 20191225, end: 20200325
  3. FOLIC ACID. [Concomitant]
     Active Substance: FOLIC ACID
  4. GABAPENTIN. [Concomitant]
     Active Substance: GABAPENTIN
  5. PROZAC [Concomitant]
     Active Substance: FLUOXETINE HYDROCHLORIDE
  6. TALTZ [Suspect]
     Active Substance: IXEKIZUMAB
     Indication: PSORIATIC ARTHROPATHY
     Dosage: ?          QUANTITY:2 INJECTION(S);OTHER FREQUENCY:ONCE PER MONTH;OTHER ROUTE:INJECTION?
     Dates: start: 20191225, end: 20200325

REACTIONS (12)
  - Weight increased [None]
  - Hunger [None]
  - Joint stiffness [None]
  - Abdominal pain [None]
  - Vulvovaginal pain [None]
  - Tendon pain [None]
  - Bladder pain [None]
  - Irritable bowel syndrome [None]
  - Arthritis [None]
  - Food craving [None]
  - Arthralgia [None]
  - Urinary tract pain [None]

NARRATIVE: CASE EVENT DATE: 20200312
